FAERS Safety Report 7845921-2 (Version None)
Quarter: 2011Q4

REPORT INFORMATION
  Report Type: 
  Country: None (occurrence: None)
  Receive Date: 20111025
  Receipt Date: 20111015
  Transmission Date: 20120403
  Serious: Yes (Other)
  Sender: FDA-Public Use
  Company Number: CA-BAYER-2011-099812

PATIENT
  Sex: Male

DRUGS (1)
  1. AVELOX [Suspect]
     Dosage: UNK
     Dates: start: 20100501

REACTIONS (17)
  - DIZZINESS [None]
  - CHILLS [None]
  - DISTURBANCE IN ATTENTION [None]
  - HEADACHE [None]
  - PALPITATIONS [None]
  - FEELING ABNORMAL [None]
  - BALANCE DISORDER [None]
  - NERVOUS SYSTEM DISORDER [None]
  - NEUROPATHY PERIPHERAL [None]
  - BLOOD URINE PRESENT [None]
  - PARAESTHESIA [None]
  - AURA [None]
  - DIARRHOEA [None]
  - NIGHT SWEATS [None]
  - PAROSMIA [None]
  - PAIN IN EXTREMITY [None]
  - MUSCULAR WEAKNESS [None]
